FAERS Safety Report 5695310-4 (Version None)
Quarter: 2008Q2

REPORT INFORMATION
  Report Type: 
  Country: None (occurrence: None)
  Receive Date: 20080404
  Receipt Date: 20080331
  Transmission Date: 20081010
  Serious: Yes (Other)
  Sender: FDA-Public Use
  Company Number: FR-PFIZER INC-2008028795

PATIENT
  Age: 43 Year
  Sex: Female

DRUGS (1)
  1. XANAX [Suspect]

REACTIONS (2)
  - OVERDOSE [None]
  - PARANOIA [None]
